FAERS Safety Report 4404196-7 (Version None)
Quarter: 2004Q3

REPORT INFORMATION
  Report Type: 
  Country: None (occurrence: None)
  Receive Date: 20040719
  Receipt Date: 20040709
  Transmission Date: 20050211
  Serious: Yes (Hospitalization)
  Sender: FDA-Public Use
  Company Number: FRWYE895012JUL04

PATIENT
  Age: 4 Day
  Sex: Male

DRUGS (1)
  1. OXAZEPAM [Suspect]
     Dosage: 10 MG 1X PER 1 DAY ORAL
     Route: 048

REACTIONS (2)
  - DRUG EXPOSURE DURING PREGNANCY [None]
  - DRUG WITHDRAWAL SYNDROME NEONATAL [None]
